FAERS Safety Report 10039375 (Version 2)
Quarter: 2014Q1

REPORT INFORMATION
  Report Type: Spontaneous
  Country: FR (occurrence: FR)
  Receive Date: 20140326
  Receipt Date: 20140326
  Transmission Date: 20141002
  Serious: Yes (Other)
  Sender: FDA-Public Use
  Company Number: PHHY2014FR009322

PATIENT
  Age: 89 Year
  Sex: Female

DRUGS (8)
  1. LUCENTIS [Suspect]
     Indication: AGE-RELATED MACULAR DEGENERATION
     Dosage: UNK UKN, UNK
     Route: 031
     Dates: start: 20110603
  2. LUCENTIS [Suspect]
     Dosage: UNK UKN, UNK
     Route: 031
     Dates: start: 20140128
  3. LETROZOLE [Suspect]
     Dosage: UNK UKN, UNK
  4. LEVOTHYROX [Concomitant]
     Indication: HYPOTHYROIDISM
     Dosage: 50 UG, 1 DF IN THE MORNING
     Route: 048
     Dates: start: 200911
  5. PRETERAX [Concomitant]
     Indication: HYPERTENSION
     Dosage: UNK, 1 DF IN THE MORNING
     Dates: start: 2008
  6. CRESTOR [Concomitant]
     Indication: DYSLIPIDAEMIA
     Dosage: 5 MG, 1 DF IN THE MORNING
     Dates: start: 2008
  7. KARDEGIC [Concomitant]
     Indication: TRANSIENT ISCHAEMIC ATTACK
     Dosage: 160 MG, 1 DF IN THE MORNING
     Dates: start: 2008
  8. VENLAFAXINE [Concomitant]
     Dosage: 75 MG, UNK
     Dates: start: 201310

REACTIONS (4)
  - Cognitive disorder [Not Recovered/Not Resolved]
  - Asthenia [Not Recovered/Not Resolved]
  - Fatigue [Unknown]
  - Memory impairment [Unknown]
